FAERS Safety Report 20055084 (Version 1)
Quarter: 2021Q4

REPORT INFORMATION
  Report Type: Spontaneous
  Country: US (occurrence: None)
  Receive Date: 20211110
  Receipt Date: 20211110
  Transmission Date: 20220304
  Serious: No
  Sender: FDA-Public Use
  Company Number: None

PATIENT
  Age: 34 Year
  Sex: Female

DRUGS (1)
  1. NEXPLANON [Suspect]
     Active Substance: ETONOGESTREL
     Indication: Contraception
     Dosage: OTHER FREQUENCY : EVERY 3 YEARS;?OTHER ROUTE : SUBDERMAL;?
     Route: 050
     Dates: start: 20210811, end: 20210926

REACTIONS (1)
  - Implant site abscess [None]

NARRATIVE: CASE EVENT DATE: 20210811
